FAERS Safety Report 24140981 (Version 1)
Quarter: 2024Q3

REPORT INFORMATION
  Report Type: Spontaneous
  Country: CA (occurrence: None)
  Receive Date: 20240725
  Receipt Date: 20240725
  Transmission Date: 20241016
  Serious: Yes (Other)
  Sender: Public
  Company Number: None

PATIENT
  Age: 32 Year
  Weight: 52 kg

DRUGS (1)
  1. MONISTAT 3 [Suspect]
     Active Substance: MICONAZOLE NITRATE
     Dosage: OTHER QUANTITY : 1 APPLICATOR;?FREQUENCY : DAILY;?
     Route: 067
     Dates: start: 20240725, end: 20240725

REACTIONS (2)
  - Burning sensation [None]
  - Pruritus [None]

NARRATIVE: CASE EVENT DATE: 20240725
